FAERS Safety Report 10483783 (Version 5)
Quarter: 2014Q4

REPORT INFORMATION
  Report Type: Spontaneous
  Country: AU (occurrence: AU)
  Receive Date: 20140930
  Receipt Date: 20141119
  Transmission Date: 20150528
  Serious: Yes (Hospitalization)
  Sender: FDA-Public Use
  Company Number: AU-ASTRAZENECA-2014SE72166

PATIENT
  Age: 20662 Day
  Sex: Male
  Weight: 114.3 kg

DRUGS (5)
  1. SYMBICORT [Suspect]
     Active Substance: BUDESONIDE\FORMOTEROL FUMARATE DIHYDRATE
     Indication: PRODUCT USED FOR UNKNOWN INDICATION
     Dosage: 200/6 AS REQUIRED
     Route: 055
     Dates: start: 20140828
  2. SYMBICORT [Suspect]
     Active Substance: BUDESONIDE\FORMOTEROL FUMARATE DIHYDRATE
     Indication: PRODUCT USED FOR UNKNOWN INDICATION
     Dosage: 200/6 AS REQUIRED
     Route: 055
     Dates: start: 20140814, end: 20140826
  3. PANADEINE FORTE [Concomitant]
     Active Substance: ACETAMINOPHEN\CODEINE PHOSPHATE
     Indication: PAIN
     Dosage: 500/30
     Route: 048
  4. GASTRO STOP [Concomitant]
     Indication: DIARRHOEA
     Route: 048
  5. SYMBICORT [Suspect]
     Active Substance: BUDESONIDE\FORMOTEROL FUMARATE DIHYDRATE
     Indication: PRODUCT USED FOR UNKNOWN INDICATION
     Dosage: 200/6 TWO TIMES A DAY
     Route: 055
     Dates: start: 20140814, end: 20140826

REACTIONS (5)
  - Asthma [Unknown]
  - Asthma [Recovered/Resolved]
  - Influenza A virus test positive [Unknown]
  - Enterovirus test positive [Unknown]
  - Human rhinovirus test positive [Unknown]

NARRATIVE: CASE EVENT DATE: 20140825
